FAERS Safety Report 5326201-6 (Version None)
Quarter: 2007Q2

REPORT INFORMATION
  Report Type: 
  Country: None (occurrence: None)
  Receive Date: 20070516
  Receipt Date: 20070511
  Transmission Date: 20071010
  Serious: Yes (Hospitalization)
  Sender: FDA-Public Use
  Company Number: US-BAYER-200710492BWH

PATIENT
  Age: 67 Year
  Sex: Female
  Weight: 70 kg

DRUGS (7)
  1. NEXAVAR [Suspect]
     Indication: METASTATIC RENAL CELL CARCINOMA
     Dosage: TOTAL DAILY DOSE: 800 MG  UNIT DOSE: 200 MG
     Route: 048
     Dates: start: 20061214
  2. DIOVAN [Concomitant]
  3. TOPROL-XL [Concomitant]
  4. THYROID TAB [Concomitant]
  5. MULTI-VITAMIN [Concomitant]
  6. IMODIUM [Concomitant]
  7. TYLENOL [Concomitant]

REACTIONS (13)
  - ALOPECIA [None]
  - BARTHOLIN'S CYST [None]
  - BLOOD PRESSURE INCREASED [None]
  - CAPILLARY DISORDER [None]
  - DIARRHOEA [None]
  - ERYTHEMA [None]
  - FATIGUE [None]
  - FEELING ABNORMAL [None]
  - FUNGAL INFECTION [None]
  - HYPOAESTHESIA [None]
  - MASS [None]
  - PALMAR-PLANTAR ERYTHRODYSAESTHESIA SYNDROME [None]
  - SKIN PAPILLOMA [None]
